FAERS Safety Report 10155405 (Version 2)
Quarter: 2014Q2

REPORT INFORMATION
  Report Type: Report from Study
  Country: US (occurrence: US)
  Receive Date: 20140506
  Receipt Date: 20140512
  Transmission Date: 20141212
  Serious: Yes (Hospitalization)
  Sender: FDA-Public Use
  Company Number: US-ACTELION-A-NJ2014-98130

PATIENT
  Age: 45 Year
  Sex: Female

DRUGS (2)
  1. VELETRI [Suspect]
     Indication: CONNECTIVE TISSUE DISORDER
     Dosage: 20 NG/KG, PER MIN
     Route: 042
     Dates: start: 20110428
  2. ADCIRCA [Concomitant]

REACTIONS (4)
  - Infection [Unknown]
  - Fall [Unknown]
  - Foot fracture [Unknown]
  - Laceration [Unknown]
